FAERS Safety Report 4826477-5 (Version None)
Quarter: 2005Q4

REPORT INFORMATION
  Report Type: 
  Country: None (occurrence: None)
  Receive Date: 20051014
  Receipt Date: 20050901
  Transmission Date: 20060501
  Serious: Yes (Other)
  Sender: FDA-Public Use
  Company Number: 2005123258

PATIENT
  Age: 87 Year
  Sex: Female

DRUGS (8)
  1. MACUGEN [Suspect]
     Indication: ILL-DEFINED DISORDER
     Dosage: (1 IN 6 WK),INTRAVENOUS
     Route: 042
     Dates: start: 20050505, end: 20050505
  2. TOPROL (METOPROLOL) [Concomitant]
  3. TRIAMTERENE AND HYDOCHLOROTHIAZIDE ^HARRIS^ (HYDROCHLOROTHIAZIDE, TRIA [Concomitant]
  4. PREMARIN [Concomitant]
  5. MAXZIDE [Concomitant]
  6. RANITIDINE HCL [Concomitant]
  7. LIPITOR [Concomitant]
  8. TRICOR [Concomitant]

REACTIONS (1)
  - ENDOPHTHALMITIS [None]
